FAERS Safety Report 8276688-4 (Version None)
Quarter: 2012Q2

REPORT INFORMATION
  Report Type: 
  Country: None (occurrence: None)
  Receive Date: 20120412
  Receipt Date: 20120412
  Transmission Date: 20120825
  Serious: Yes (Disabling)
  Sender: FDA-Public Use
  Company Number: None

PATIENT
  Age: 74 Year
  Sex: Male
  Weight: 73.028 kg

DRUGS (1)
  1. ACETAZOLAMIDE [Suspect]
     Indication: ABNORMAL SENSATION IN EYE
     Dosage: 500MG  THEN CHGED TI 250MG
     Route: 048
     Dates: start: 20120313, end: 20120403

REACTIONS (4)
  - VOMITING [None]
  - NAUSEA [None]
  - HYPERSENSITIVITY [None]
  - URTICARIA [None]
